FAERS Safety Report 12916488 (Version 1)
Quarter: 2016Q4

REPORT INFORMATION
  Report Type: Spontaneous
  Country: GB (occurrence: GB)
  Receive Date: 20161107
  Receipt Date: 20161107
  Transmission Date: 20170207
  Serious: Yes (Other)
  Sender: FDA-Public Use
  Company Number: GB-009507513-1611GBR000054

PATIENT
  Age: 53 Year
  Sex: Female

DRUGS (1)
  1. NEXPLANON [Suspect]
     Active Substance: ETONOGESTREL
     Dosage: UNK
     Route: 059
     Dates: start: 20111110

REACTIONS (2)
  - Incorrect drug administration duration [Unknown]
  - Breast cancer [Unknown]

NARRATIVE: CASE EVENT DATE: 20141110
